FAERS Safety Report 6218232-9 (Version None)
Quarter: 2009Q2

REPORT INFORMATION
  Report Type: 
  Country: None (occurrence: None)
  Receive Date: 20090604
  Receipt Date: 20090604
  Transmission Date: 20091009
  Serious: Yes (Death)
  Sender: FDA-Public Use
  Company Number: None

PATIENT
  Age: 83 Year
  Sex: Female
  Weight: 51.7101 kg

DRUGS (3)
  1. AVASTIN [Suspect]
     Indication: LUNG NEOPLASM MALIGNANT
     Dosage: EVERY 3WKS IV DRIP
     Route: 041
     Dates: start: 20071210, end: 20090414
  2. TARCIVA [Concomitant]
  3. DIOVAN SYTHROID [Concomitant]

REACTIONS (5)
  - FALL [None]
  - GASTRIC PERFORATION [None]
  - LOSS OF CONSCIOUSNESS [None]
  - NEEDLE ISSUE [None]
  - OEDEMA PERIPHERAL [None]
